FAERS Safety Report 17972713 (Version 2)
Quarter: 2021Q4

REPORT INFORMATION
  Report Type: Spontaneous
  Country: US (occurrence: US)
  Receive Date: 20200702
  Receipt Date: 20211221
  Transmission Date: 20220303
  Serious: Yes (Other)
  Sender: FDA-Public Use
  Company Number: US-GLAXOSMITHKLINE-US2020116862

PATIENT
  Sex: Male

DRUGS (7)
  1. ZANTAC [Suspect]
     Active Substance: RANITIDINE HYDROCHLORIDE
     Dosage: UNK
     Route: 065
     Dates: start: 19900615, end: 20190615
  2. ZANTAC [Suspect]
     Active Substance: RANITIDINE HYDROCHLORIDE
     Dosage: UNK UNK, U
     Route: 065
     Dates: start: 199001, end: 202001
  3. ZANTAC [Suspect]
     Active Substance: RANITIDINE HYDROCHLORIDE
     Dosage: UNK UNK, U
     Route: 065
     Dates: start: 199001, end: 202001
  4. RANITIDINE [Suspect]
     Active Substance: RANITIDINE
     Dosage: UNK UNK, U
     Route: 065
     Dates: start: 199001, end: 202001
  5. RANITIDINE [Suspect]
     Active Substance: RANITIDINE
     Dosage: UNK, U
     Route: 065
     Dates: start: 199001, end: 202001
  6. RANITIDINE [Suspect]
     Active Substance: RANITIDINE
     Dosage: UNK, U
     Route: 065
     Dates: start: 199001, end: 202001
  7. RANITIDINE [Suspect]
     Active Substance: RANITIDINE
     Dosage: UNK, U
     Route: 065
     Dates: start: 199001, end: 202001

REACTIONS (1)
  - Colorectal cancer [Unknown]
